FAERS Safety Report 10558137 (Version 1)
Quarter: 2014Q4

REPORT INFORMATION
  Report Type: Spontaneous
  Country: US (occurrence: US)
  Receive Date: 20141031
  Receipt Date: 20141031
  Transmission Date: 20150529
  Serious: No
  Sender: FDA-Public Use
  Company Number: US-GLAXOSMITHKLINE-US2014006297

PATIENT
  Sex: Male

DRUGS (13)
  1. VITAMIN D 3 [Concomitant]
  2. WARFARIN [Concomitant]
     Active Substance: WARFARIN
  3. DIOVAN [Concomitant]
     Active Substance: VALSARTAN
  4. ASPIRIN. [Concomitant]
     Active Substance: ASPIRIN
  5. LORAZEPAM. [Concomitant]
     Active Substance: LORAZEPAM
  6. NITROGLYCERIN. [Concomitant]
     Active Substance: NITROGLYCERIN
  7. ADVAIR DISKUS [Suspect]
     Active Substance: FLUTICASONE PROPIONATE\SALMETEROL XINAFOATE
     Indication: CHRONIC OBSTRUCTIVE PULMONARY DISEASE
     Dosage: 1 PUFF(S), BID
     Route: 055
     Dates: start: 200807
  8. HYDROCHLOROTHIAZIDE. [Concomitant]
     Active Substance: HYDROCHLOROTHIAZIDE
  9. TRICOR [Concomitant]
     Active Substance: FENOFIBRATE
  10. GLIMEPIRIDE. [Concomitant]
     Active Substance: GLIMEPIRIDE
  11. UNKNOWN ACID REDUCER [Concomitant]
  12. FISH OIL [Concomitant]
     Active Substance: FISH OIL
  13. BYSTOLIC [Concomitant]
     Active Substance: NEBIVOLOL HYDROCHLORIDE

REACTIONS (1)
  - Arthropathy [Not Recovered/Not Resolved]
